FAERS Safety Report 15562975 (Version 1)
Quarter: 2018Q4

REPORT INFORMATION
  Report Type: Report from Study
  Country: KR (occurrence: KR)
  Receive Date: 20181029
  Receipt Date: 20181029
  Transmission Date: 20190205
  Serious: Yes (Hospitalization)
  Sender: FDA-Public Use
  Company Number: KR-BAYER-2018-177660

PATIENT
  Sex: Female
  Weight: 70 kg

DRUGS (10)
  1. STIVARGA [Suspect]
     Active Substance: REGORAFENIB
     Indication: HEPATOCELLULAR CARCINOMA
     Dosage: DAILY DOSE 120 MG
     Dates: start: 20180912, end: 20180912
  2. MYPOL [Concomitant]
     Indication: CANCER PAIN
     Dosage: 250 MG, TID
     Dates: start: 20180514
  3. COMBIFLEX [Concomitant]
     Indication: DECREASED APPETITE
  4. PLASMA [Concomitant]
     Active Substance: HUMAN PLASMA
     Dosage: 1000 ML, ONCE
     Dates: start: 20180913, end: 20180913
  5. ALBUMIN [Concomitant]
     Active Substance: ALBUMIN HUMAN
     Dosage: 100 ML, ONCE
     Dates: start: 20180916, end: 20180916
  6. STIVARGA [Suspect]
     Active Substance: REGORAFENIB
     Indication: HEPATOCELLULAR CARCINOMA
     Dosage: DAILY DOSE 160 MG
     Dates: start: 20180727, end: 2018
  7. CODAEWON [Concomitant]
     Dosage: 20 ML, TID
     Dates: start: 20180914
  8. MATRIFEN [Concomitant]
     Active Substance: FENTANYL
     Indication: CANCER PAIN
     Dosage: 2.75 MG EVERY THREE DAYS
     Dates: start: 20180519
  9. COMBIFLEX [Concomitant]
     Indication: ASTHENIA
     Dosage: 1100 ML, EVERY 24 HOURS
     Dates: start: 20180914, end: 20180915
  10. BARACLUDE [Concomitant]
     Active Substance: ENTECAVIR
     Indication: CHRONIC HEPATITIS B
     Dosage: DAILY DOSE .5 MG
     Dates: start: 20130926

REACTIONS (1)
  - Colitis [Recovered/Resolved]

NARRATIVE: CASE EVENT DATE: 20180913
